FAERS Safety Report 15067514 (Version 1)
Quarter: 2018Q2

REPORT INFORMATION
  Report Type: Spontaneous
  Country: US (occurrence: US)
  Receive Date: 20180626
  Receipt Date: 20180626
  Transmission Date: 20180711
  Serious: No
  Sender: FDA-Public Use
  Company Number: US-BAYER-2018-115392

PATIENT
  Age: 74 Year
  Sex: Female
  Weight: 91 kg

DRUGS (7)
  1. LISINOPRIL. [Concomitant]
     Active Substance: LISINOPRIL
  2. VITAMIN B12 [Concomitant]
     Active Substance: CYANOCOBALAMIN
  3. CRANBERRY. [Concomitant]
     Active Substance: CRANBERRY
  4. VITAMIN D [Concomitant]
     Active Substance: CHOLECALCIFEROL
  5. ALEVE [Suspect]
     Active Substance: NAPROXEN SODIUM
     Indication: PAIN
     Dosage: 2 TO 3 , QD
     Route: 048
     Dates: start: 2017
  6. VITAMIN C [Concomitant]
     Active Substance: ASCORBIC ACID
  7. GARLIC. [Concomitant]
     Active Substance: GARLIC

REACTIONS (3)
  - Incorrect drug administration duration [Unknown]
  - Drug effect incomplete [Unknown]
  - Product use issue [Unknown]

NARRATIVE: CASE EVENT DATE: 2017
